FAERS Safety Report 8469409-3 (Version None)
Quarter: 2012Q2

REPORT INFORMATION
  Report Type: 
  Country: None (occurrence: None)
  Receive Date: 20120626
  Receipt Date: 20120620
  Transmission Date: 20120825
  Serious: Yes (Hospitalization)
  Sender: FDA-Public Use
  Company Number: JP-ABBOTT-12P-087-0945220-00

PATIENT
  Age: 33 Year
  Sex: Female

DRUGS (7)
  1. IRSOGLADINE MALEATE [Concomitant]
     Indication: BEHCET'S SYNDROME
  2. HUMIRA [Suspect]
     Dates: start: 20120528
  3. COLCHICINE [Concomitant]
     Indication: BEHCET'S SYNDROME
  4. MESALAMINE [Concomitant]
     Indication: BEHCET'S SYNDROME
  5. RABEPRAZOLE SODIUM [Concomitant]
     Indication: BEHCET'S SYNDROME
  6. HUMIRA [Suspect]
     Indication: BEHCET'S SYNDROME
     Route: 058
     Dates: start: 20120419, end: 20120517
  7. SULFAMETHOXAZOLE AND TRIMETHOPRIM [Concomitant]
     Indication: ANTIFUNGAL PROPHYLAXIS

REACTIONS (1)
  - FEBRILE NEUTROPENIA [None]
